FAERS Safety Report 14511488 (Version 1)
Quarter: 2018Q1

REPORT INFORMATION
  Report Type: Report from Study
  Country: US (occurrence: US)
  Receive Date: 20180209
  Receipt Date: 20180209
  Transmission Date: 20180509
  Serious: Yes (Hospitalization, Other)
  Sender: FDA-Public Use
  Company Number: US-ASTRAZENECA-2018SE14312

PATIENT
  Age: 733 Month
  Sex: Female
  Weight: 83.5 kg

DRUGS (4)
  1. AZD2281 [Suspect]
     Active Substance: OLAPARIB
     Indication: FALLOPIAN TUBE CANCER
     Route: 048
     Dates: start: 20170329
  2. AZD2171 [Suspect]
     Active Substance: CEDIRANIB
     Indication: FALLOPIAN TUBE CANCER
     Route: 048
     Dates: start: 20171108
  3. AZD2281 [Suspect]
     Active Substance: OLAPARIB
     Indication: FALLOPIAN TUBE CANCER
     Route: 048
     Dates: start: 20171108
  4. AZD2171 [Suspect]
     Active Substance: CEDIRANIB
     Indication: FALLOPIAN TUBE CANCER
     Route: 048
     Dates: start: 20170329

REACTIONS (2)
  - Hypertension [Not Recovered/Not Resolved]
  - Vasculitis [Not Recovered/Not Resolved]

NARRATIVE: CASE EVENT DATE: 20170403
